FAERS Safety Report 7413414-2 (Version None)
Quarter: 2011Q2

REPORT INFORMATION
  Report Type: 
  Country: None (occurrence: None)
  Receive Date: 20110413
  Receipt Date: 20110406
  Transmission Date: 20111010
  Serious: Yes (Hospitalization, Other)
  Sender: FDA-Public Use
  Company Number: US-ELI_LILLY_AND_COMPANY-US201104002297

PATIENT
  Sex: Female

DRUGS (4)
  1. HUMULIN N [Suspect]
     Indication: TYPE 2 DIABETES MELLITUS
  2. LANTUS [Concomitant]
     Indication: TYPE 2 DIABETES MELLITUS
     Dosage: UNK
  3. GLUCOPHAGE [Concomitant]
     Indication: TYPE 2 DIABETES MELLITUS
     Dosage: UNK
     Route: 048
  4. HUMALOG [Suspect]
     Indication: TYPE 2 DIABETES MELLITUS
     Dosage: UNK UNK, PRN
     Dates: start: 19950101

REACTIONS (7)
  - LUNG NEOPLASM MALIGNANT [None]
  - RENAL FAILURE [None]
  - BLOOD GLUCOSE FLUCTUATION [None]
  - SKIN DISORDER [None]
  - PHOTOSENSITIVITY REACTION [None]
  - SYSTEMIC LUPUS ERYTHEMATOSUS [None]
  - COMPUTERISED TOMOGRAM ABNORMAL [None]
